FAERS Safety Report 19501295 (Version 1)
Quarter: 2021Q3

REPORT INFORMATION
  Report Type: Other
  Country: DE (occurrence: DE)
  Receive Date: 20210707
  Receipt Date: 20210707
  Transmission Date: 20211014
  Serious: Yes (Other)
  Sender: FDA-Public Use
  Company Number: DE-ASTELLAS-2021US024419

PATIENT
  Age: 8 Month
  Sex: Male
  Weight: 3 kg

DRUGS (2)
  1. PROGRAF [Suspect]
     Active Substance: TACROLIMUS
     Indication: NATURAL KILLER CELL ACTIVITY INCREASED
     Route: 064
  2. L?THYROXIN [Concomitant]
     Active Substance: LEVOTHYROXINE SODIUM
     Indication: HYPOTHYROIDISM
     Route: 064
     Dates: start: 20200111, end: 20201004

REACTIONS (2)
  - Foetal exposure during pregnancy [Unknown]
  - Congenital cystic kidney disease [Unknown]
